FAERS Safety Report 5822448-0 (Version None)
Quarter: 2008Q3

REPORT INFORMATION
  Report Type: 
  Country: None (occurrence: None)
  Receive Date: 20080725
  Receipt Date: 20080305
  Transmission Date: 20090109
  Serious: No
  Sender: FDA-Public Use
  Company Number: US-AMGEN-KDL267902

PATIENT
  Sex: Male
  Weight: 88.5 kg

DRUGS (10)
  1. PROCRIT [Suspect]
     Indication: RENAL FAILURE CHRONIC
     Route: 058
     Dates: start: 20050101
  2. BISACODYL [Concomitant]
     Route: 048
     Dates: start: 20050101
  3. CELLCEPT [Concomitant]
     Route: 048
     Dates: start: 20050101
  4. COLCHICINE [Concomitant]
     Route: 048
     Dates: start: 20050101
  5. VALIUM [Concomitant]
     Route: 048
     Dates: start: 20050101
  6. NEURONTIN [Concomitant]
     Route: 048
     Dates: start: 20050101
  7. LABETALOL HCL [Concomitant]
     Route: 048
     Dates: start: 20050101
  8. PROGRAF [Concomitant]
  9. PREDNISONE TAB [Concomitant]
  10. INSULIN [Concomitant]

REACTIONS (2)
  - DRUG INEFFECTIVE [None]
  - INJECTION SITE IRRITATION [None]
